FAERS Safety Report 23478291 (Version 1)
Quarter: 2024Q1

REPORT INFORMATION
  Report Type: Report from Study
  Country: US (occurrence: US)
  Receive Date: 20240204
  Receipt Date: 20240204
  Transmission Date: 20240410
  Serious: No
  Sender: FDA-Public Use
  Company Number: US-EXELIXIS-CABO-23070473

PATIENT
  Sex: Male

DRUGS (9)
  1. COMETRIQ [Suspect]
     Active Substance: CABOZANTINIB S-MALATE
     Indication: Thyroid cancer
     Dosage: 100 MG, QD, (80X1 CAPSULE PLUS 20X1 CAPSULE)
     Dates: start: 20231028
  2. LEVOTHYROXINE [Concomitant]
     Active Substance: LEVOTHYROXINE\LEVOTHYROXINE SODIUM
  3. LEVETIRACETAM [Concomitant]
     Active Substance: LEVETIRACETAM
  4. SIMVASTATIN [Concomitant]
     Active Substance: SIMVASTATIN
  5. MONTELUKAST [Concomitant]
     Active Substance: MONTELUKAST SODIUM
  6. ZINC [Concomitant]
     Active Substance: PYRITHIONE ZINC\ZINC\ZINC CHLORIDE
  7. VITAMIN D3 [Concomitant]
     Active Substance: CHOLECALCIFEROL
  8. VITAMINS [Concomitant]
     Active Substance: VITAMINS
  9. ASPIRIN [Concomitant]
     Active Substance: ASPIRIN

REACTIONS (4)
  - Blood pressure increased [Unknown]
  - Fatigue [Unknown]
  - Diarrhoea [Unknown]
  - Arthralgia [Unknown]
